FAERS Safety Report 8479926-8 (Version None)
Quarter: 2012Q2

REPORT INFORMATION
  Report Type: 
  Country: None (occurrence: None)
  Receive Date: 20120629
  Receipt Date: 20120620
  Transmission Date: 20120825
  Serious: Yes (Hospitalization)
  Sender: FDA-Public Use
  Company Number: IT-ASTRAZENECA-2012SE41645

PATIENT
  Sex: Male

DRUGS (2)
  1. ISOPTIN [Suspect]
     Route: 048
     Dates: start: 20110521, end: 20120520
  2. TENORMIN [Suspect]
     Route: 048
     Dates: start: 20110521, end: 20120520

REACTIONS (2)
  - BRADYCARDIA [None]
  - PRESYNCOPE [None]
